FAERS Safety Report 9230822 (Version 1)
Quarter: 2013Q2

REPORT INFORMATION
  Report Type: Spontaneous
  Country: FR (occurrence: FR)
  Receive Date: 20130415
  Receipt Date: 20130415
  Transmission Date: 20140414
  Serious: Yes (Hospitalization)
  Sender: FDA-Public Use
  Company Number: FR-ASTRAZENECA-2013SE21967

PATIENT
  Age: 24609 Day
  Sex: Male

DRUGS (5)
  1. ATACAND [Suspect]
     Indication: HYPERTENSION
     Route: 048
     Dates: start: 20130122, end: 20130207
  2. IXPRIM [Suspect]
     Indication: PROCEDURAL PAIN
     Route: 048
     Dates: start: 20130109, end: 20130204
  3. XARELTO [Suspect]
     Indication: PROPHYLAXIS
     Route: 048
     Dates: start: 20130109, end: 20130205
  4. MYOLASTAN [Suspect]
     Route: 048
     Dates: start: 20130109, end: 20130207
  5. INEGY [Concomitant]

REACTIONS (1)
  - Lichenoid keratosis [Recovering/Resolving]
